FAERS Safety Report 14339312 (Version 6)
Quarter: 2021Q4

REPORT INFORMATION
  Report Type: Report from Study
  Country: GB (occurrence: GB)
  Receive Date: 20171230
  Receipt Date: 20211223
  Transmission Date: 20220303
  Serious: Yes (Hospitalization, Other)
  Sender: FDA-Public Use
  Company Number: GB-BRISTOL-MYERS SQUIBB COMPANY-BMS-2017-115877

PATIENT
  Age: 51 Year
  Sex: Female
  Weight: 82.2 kg

DRUGS (6)
  1. IPILIMUMAB [Suspect]
     Active Substance: IPILIMUMAB
     Indication: Malignant melanoma
     Dosage: 1 DF=810 (UNSPECIFIED UNIT), UNK
     Route: 042
     Dates: start: 20171117, end: 20171117
  2. IPILIMUMAB [Suspect]
     Active Substance: IPILIMUMAB
     Dosage: 1 DF=81 (UNIT NOT SPECIFIED)
     Route: 042
     Dates: start: 20171117, end: 20171117
  3. ACETAMINOPHEN [Concomitant]
     Active Substance: ACETAMINOPHEN
     Indication: Product used for unknown indication
     Dosage: 1 G, UNK
     Route: 065
     Dates: start: 2007
  4. SAGE [Concomitant]
     Active Substance: SAGE
     Indication: Product used for unknown indication
     Dosage: 1 TAB, UNK
     Route: 065
     Dates: start: 201611
  5. IBUPROFEN SODIUM [Concomitant]
     Active Substance: IBUPROFEN SODIUM
     Indication: Product used for unknown indication
     Dosage: 400 MG, UNK
     Route: 065
     Dates: start: 2007
  6. KEPPRA [Concomitant]
     Active Substance: LEVETIRACETAM
     Indication: Product used for unknown indication
     Dosage: 500 MG, UNK
     Route: 065
     Dates: start: 20170822

REACTIONS (1)
  - Meningitis aseptic [Recovered/Resolved]

NARRATIVE: CASE EVENT DATE: 20171213
